FAERS Safety Report 4667397-9 (Version None)
Quarter: 2005Q2

REPORT INFORMATION
  Report Type: 
  Country: None (occurrence: None)
  Receive Date: 20050428
  Receipt Date: 20040308
  Transmission Date: 20051028
  Serious: Yes (Other)
  Sender: FDA-Public Use
  Company Number: 2003122735

PATIENT
  Age: 78 Year
  Sex: Male

DRUGS (15)
  1. ZITHROMAX [Suspect]
     Indication: BRONCHITIS
     Dates: start: 20031001, end: 20031029
  2. THALIDOMIDE (THALIDOMIDE) [Suspect]
     Indication: PROSTATE CANCER METASTATIC
     Dosage: 50 MG, ORAL
     Route: 048
     Dates: start: 20030326
  3. ASASANTIN (ACETYLSALICYLIC ACID, DIPYRIDAMOLE) [Concomitant]
  4. LANSOPRAZOLE [Concomitant]
  5. METAMUCIL-2 [Concomitant]
  6. CALCIUM (CALCIUM) [Concomitant]
  7. DEXAMETHASONE [Concomitant]
  8. WARFARIN SODIUM [Concomitant]
  9. ENALAPRIL MALEATE [Concomitant]
  10. ASPIRIN [Concomitant]
  11. QUININE SULFATE [Concomitant]
  12. PAMIDRONATE DISODIUM [Concomitant]
  13. BIMATOPROST (BIMATOPROST) [Concomitant]
  14. DOCETAXEL (DOCETAXEL) [Concomitant]
  15. ZOLEDRONIC ACID (ZOLEDRONIC ACID) [Concomitant]

REACTIONS (12)
  - ARTHRALGIA [None]
  - BLOOD ALBUMIN DECREASED [None]
  - BLOOD CALCIUM DECREASED [None]
  - BODY TEMPERATURE DECREASED [None]
  - DEHYDRATION [None]
  - FATIGUE [None]
  - FLUID INTAKE REDUCED [None]
  - HAEMATOCRIT DECREASED [None]
  - HEART RATE INCREASED [None]
  - HYPOTENSION [None]
  - SYNCOPE [None]
  - VIRAL UPPER RESPIRATORY TRACT INFECTION [None]
